FAERS Safety Report 7734524-6 (Version None)
Quarter: 2011Q3

REPORT INFORMATION
  Report Type: 
  Country: None (occurrence: None)
  Receive Date: 20110907
  Receipt Date: 20110427
  Transmission Date: 20111222
  Serious: Yes (Hospitalization)
  Sender: FDA-Public Use
  Company Number: US-GLAXOSMITHKLINE-A0925659A

PATIENT
  Age: 59 Year
  Sex: Female

DRUGS (1)
  1. AVANDIA [Suspect]
     Indication: DIABETES MELLITUS
     Route: 048

REACTIONS (11)
  - MYOCARDIAL INFARCTION [None]
  - RENAL FAILURE [None]
  - DECUBITUS ULCER [None]
  - OBSTRUCTION [None]
  - NERVE INJURY [None]
  - STAPHYLOCOCCAL INFECTION [None]
  - PNEUMONIA ASPIRATION [None]
  - DYSPHONIA [None]
  - CARDIAC DISORDER [None]
  - CORONARY ARTERY BYPASS [None]
  - RESPIRATORY FAILURE [None]
